FAERS Safety Report 4313124-4 (Version None)
Quarter: 2004Q1

REPORT INFORMATION
  Report Type: 
  Country: None (occurrence: None)
  Receive Date: 20040304
  Receipt Date: 20030213
  Transmission Date: 20041129
  Serious: Yes (Death, Other)
  Sender: FDA-Public Use
  Company Number: JP_040202601

PATIENT
  Age: 62 Year
  Sex: Female
  Weight: 48 kg

DRUGS (8)
  1. GEMZAR [Suspect]
     Indication: OVARIAN CANCER
     Dosage: 600 MG/OTHER
     Route: 050
     Dates: start: 20031031, end: 20031219
  2. TAXOTERE [Concomitant]
  3. DECADRON [Concomitant]
  4. LENDORM [Concomitant]
  5. FAMOTIDINE [Concomitant]
  6. LASIX [Concomitant]
  7. GLYBURIDE [Concomitant]
  8. BASEN (VOGLIBOSE) [Concomitant]

REACTIONS (16)
  - ABDOMINAL DISTENSION [None]
  - ANOREXIA [None]
  - BLOOD PRESSURE DECREASED [None]
  - C-REACTIVE PROTEIN INCREASED [None]
  - FACE OEDEMA [None]
  - GENERALISED OEDEMA [None]
  - HEPAPLASTIN DECREASED [None]
  - HEPATIC FAILURE [None]
  - HYPERBILIRUBINAEMIA [None]
  - HYPOPROTEINAEMIA [None]
  - JAUNDICE [None]
  - MALAISE [None]
  - MALIGNANT NEOPLASM PROGRESSION [None]
  - OEDEMA PERIPHERAL [None]
  - SEPSIS [None]
  - WHITE BLOOD CELL COUNT INCREASED [None]
